FAERS Safety Report 5388550-5 (Version None)
Quarter: 2007Q3

REPORT INFORMATION
  Report Type: 
  Country: None (occurrence: None)
  Receive Date: 20070711
  Receipt Date: 20070626
  Transmission Date: 20080115
  Serious: Yes (Hospitalization)
  Sender: FDA-Public Use
  Company Number: 2007000836

PATIENT
  Age: 68 Year
  Sex: Male

DRUGS (2)
  1. TARCEVA [Suspect]
     Indication: METASTATIC BRONCHIAL CARCINOMA
     Dosage: 150 MG (QD), ORAL
     Route: 048
  2. ANTIVITAMIN K [Concomitant]

REACTIONS (2)
  - PULMONARY EMBOLISM [None]
  - ULCER HAEMORRHAGE [None]
